FAERS Safety Report 10375860 (Version 1)
Quarter: 2014Q1

REPORT INFORMATION
  Report Type: Spontaneous
  Country: US (occurrence: None)
  Receive Date: 20140306
  Receipt Date: 20140306
  Transmission Date: 20141002
  Serious: Yes (Other)
  Sender: FDA-Public Use
  Company Number: 163-21880-13040937

PATIENT
  Age: 62 Year
  Sex: Female

DRUGS (10)
  1. REVLIMID (LENALIDOMIDE) (15 MILLIGRAM, CAPSULES) [Suspect]
     Indication: PLASMA CELL MYELOMA
     Dosage: 14 IN 21 D
     Route: 048
     Dates: start: 201301, end: 20130309
  2. VELCADE (BORTEZOMIB) (UNKNOWN) [Concomitant]
  3. DEXAMETHASONE [Concomitant]
  4. CELEBREX (CELECOXIB) [Concomitant]
  5. ONDANSETRON [Concomitant]
  6. METHADONE [Concomitant]
  7. LOVAZA (OMEGA-3 MARINE TRIGLYCERIDES) [Concomitant]
  8. LEVOTHYROXINE [Concomitant]
  9. LISINOPRIL/HCTZ (PRINZIDE) [Concomitant]
  10. OMEPRAZOLE [Concomitant]

REACTIONS (1)
  - Neutropenia [None]
